FAERS Safety Report 25699966 (Version 1)
Quarter: 2025Q3

REPORT INFORMATION
  Report Type: Spontaneous
  Country: IN (occurrence: IN)
  Receive Date: 20250819
  Receipt Date: 20250819
  Transmission Date: 20251021
  Serious: Yes (Hospitalization, Other)
  Sender: ELITE
  Company Number: IN-ELITEPHARMA-2025ELLIT00169

PATIENT
  Age: 59 Year
  Sex: Female

DRUGS (2)
  1. METHOTREXATE [Suspect]
     Active Substance: METHOTREXATE
     Indication: Rheumatoid arthritis
     Route: 065
  2. METHOTREXATE [Suspect]
     Active Substance: METHOTREXATE
     Route: 065

REACTIONS (8)
  - Mucocutaneous ulceration [Unknown]
  - Asthenia [Unknown]
  - Febrile neutropenia [Unknown]
  - Pancytopenia [Unknown]
  - Diarrhoea [Unknown]
  - Toxicity to various agents [Unknown]
  - Intentional product misuse [Unknown]
  - Overdose [Unknown]
